FAERS Safety Report 4778432-1 (Version None)
Quarter: 2005Q3

REPORT INFORMATION
  Report Type: 
  Country: None (occurrence: None)
  Receive Date: 20050926
  Receipt Date: 20050915
  Transmission Date: 20060218
  Serious: Yes (Hospitalization, Disabling)
  Sender: FDA-Public Use
  Company Number: FR-JNJFOC-20050702517

PATIENT
  Sex: Male

DRUGS (3)
  1. RISPERDAL CONSTA [Suspect]
     Route: 030
  2. PARKINANE [Concomitant]
  3. SOLU-MEDROL [Concomitant]
     Indication: CROHN'S DISEASE
     Dosage: 0.5 TO 1.5 MG DAILY

REACTIONS (1)
  - INFLAMMATORY BOWEL DISEASE [None]
